FAERS Safety Report 8522340-7 (Version None)
Quarter: 2012Q3

REPORT INFORMATION
  Report Type: 
  Country: None (occurrence: None)
  Receive Date: 20120719
  Receipt Date: 20120705
  Transmission Date: 20120928
  Serious: Yes (Other)
  Sender: FDA-Public Use
  Company Number: CHPA2012US014803

PATIENT
  Age: 67 Year
  Sex: Female

DRUGS (1)
  1. BENEFIBER W/ WHEAT DEXTRIN [Suspect]
     Dosage: UNK, BID
     Route: 048

REACTIONS (9)
  - THROAT IRRITATION [None]
  - MALAISE [None]
  - GASTROINTESTINAL DISORDER [None]
  - NAUSEA [None]
  - DEPRESSION [None]
  - GLOSSODYNIA [None]
  - DECREASED APPETITE [None]
  - ABDOMINAL PAIN UPPER [None]
  - FEELING ABNORMAL [None]
